FAERS Safety Report 6100084-9 (Version None)
Quarter: 2009Q1

REPORT INFORMATION
  Report Type: 
  Country: None (occurrence: None)
  Receive Date: 20090303
  Receipt Date: 20090225
  Transmission Date: 20090719
  Serious: Yes (Other)
  Sender: FDA-Public Use
  Company Number: B0562244A

PATIENT
  Age: 6 Year
  Sex: Male

DRUGS (2)
  1. FORTUM [Suspect]
     Indication: PNEUMONIA
     Route: 042
  2. CLOXACILLIN [Concomitant]

REACTIONS (3)
  - PRURITUS [None]
  - RASH [None]
  - THROMBOCYTOPENIA [None]
